FAERS Safety Report 4784502-4 (Version None)
Quarter: 2005Q3

REPORT INFORMATION
  Report Type: 
  Country: None (occurrence: None)
  Receive Date: 20050930
  Receipt Date: 20050928
  Transmission Date: 20060218
  Serious: Yes (Death)
  Sender: FDA-Public Use
  Company Number: US-GLAXOSMITHKLINE-A0576264A

PATIENT
  Age: 66 Year
  Sex: Male

DRUGS (3)
  1. LANOXIN [Suspect]
     Route: 065
  2. PAXIL [Suspect]
     Indication: ELECTROLYTE IMBALANCE
     Route: 048
  3. OLANZAPINE [Concomitant]

REACTIONS (1)
  - DEATH [None]
